FAERS Safety Report 7425293-8 (Version None)
Quarter: 2011Q2

REPORT INFORMATION
  Report Type: 
  Country: None (occurrence: None)
  Receive Date: 20110420
  Receipt Date: 20110318
  Transmission Date: 20111010
  Serious: Yes (Other)
  Sender: FDA-Public Use
  Company Number: US-BAYER-2011-013683

PATIENT
  Sex: Female
  Weight: 78.458 kg

DRUGS (4)
  1. YAZ [Suspect]
     Indication: CONTRACEPTION
  2. YASMIN [Suspect]
     Indication: CONTRACEPTION
  3. YAZ [Suspect]
     Indication: MENSTRUAL CYCLE MANAGEMENT
  4. MIRENA [Concomitant]
     Route: 015

REACTIONS (8)
  - BILIARY DYSKINESIA [None]
  - ABDOMINAL PAIN UPPER [None]
  - CHOLECYSTITIS CHRONIC [None]
  - PAIN [None]
  - GALLBLADDER INJURY [None]
  - GALLBLADDER DISORDER [None]
  - VOMITING [None]
  - EMOTIONAL DISTRESS [None]
